FAERS Safety Report 17409462 (Version 3)
Quarter: 2021Q3

REPORT INFORMATION
  Report Type: Spontaneous
  Country: GR (occurrence: GR)
  Receive Date: 20200212
  Receipt Date: 20210930
  Transmission Date: 20211014
  Serious: Yes (Hospitalization)
  Sender: FDA-Public Use
  Company Number: GR-ROCHE-2528781

PATIENT
  Sex: Female
  Weight: 60 kg

DRUGS (107)
  1. VINCRISTINE SULFATE. [Suspect]
     Active Substance: VINCRISTINE SULFATE
     Indication: LEUKOPENIA
  2. VALTREX [Suspect]
     Active Substance: VALACYCLOVIR HYDROCHLORIDE
     Indication: LEUKOPENIA
     Dosage: 1 CYCLE
     Route: 048
     Dates: start: 20200108, end: 20200113
  3. ERYTHROPOIETIN [Suspect]
     Active Substance: ERYTHROPOIETIN
     Indication: ANAEMIA
  4. ALDACTONE [Suspect]
     Active Substance: SPIRONOLACTONE
     Indication: DIFFUSE LARGE B-CELL LYMPHOMA
  5. CUBICIN [Suspect]
     Active Substance: DAPTOMYCIN
     Indication: ANAEMIA
  6. DOXORUBICIN HCL [Suspect]
     Active Substance: DOXORUBICIN HYDROCHLORIDE
     Indication: LEUKOPENIA
  7. DOXORUBICIN HCL [Suspect]
     Active Substance: DOXORUBICIN HYDROCHLORIDE
     Indication: HYPERTENSION
  8. LASIX [Suspect]
     Active Substance: FUROSEMIDE
     Indication: LEUKOPENIA
  9. CISPLATIN. [Suspect]
     Active Substance: CISPLATIN
     Indication: NON-HODGKIN^S LYMPHOMA
     Route: 058
  10. CHOP [Suspect]
     Active Substance: CYCLOPHOSPHAMIDE\DOXORUBICIN\PREDNISONE\VINCRISTINE
     Indication: DIFFUSE LARGE B-CELL LYMPHOMA
     Dosage: 8 CYCLES
     Route: 065
     Dates: start: 20190513, end: 20191013
  11. CLORFENAMINA [Suspect]
     Active Substance: CHLORPHENIRAMINE MALEATE
     Indication: ANAEMIA
     Route: 065
  12. PREDNISONE. [Suspect]
     Active Substance: PREDNISONE
     Indication: HYPERTENSION
  13. CANCIDAS [Suspect]
     Active Substance: CASPOFUNGIN ACETATE
     Indication: LEUKOPENIA
  14. CANCIDAS [Suspect]
     Active Substance: CASPOFUNGIN ACETATE
     Indication: ANAEMIA
  15. CYCLOPHOSPHAMIDE. [Suspect]
     Active Substance: CYCLOPHOSPHAMIDE
     Indication: HYPERTENSION
  16. MABTHERA [Suspect]
     Active Substance: RITUXIMAB
     Indication: DIFFUSE LARGE B-CELL LYMPHOMA
     Route: 065
  17. HUMAN ALBUMIN [Suspect]
     Active Substance: ALBUMIN HUMAN
     Indication: LEUKOPENIA
  18. VALTREX [Suspect]
     Active Substance: VALACYCLOVIR HYDROCHLORIDE
     Indication: HYPERTENSION
     Route: 065
  19. CUBICIN [Suspect]
     Active Substance: DAPTOMYCIN
     Indication: LEUKOPENIA
  20. RITUXIMAB. [Suspect]
     Active Substance: RITUXIMAB
     Dosage: 1400 MILLIGRAM, 1 CYCLE
     Route: 058
     Dates: start: 20191113, end: 20191210
  21. NORVASC [Suspect]
     Active Substance: AMLODIPINE BESYLATE
     Indication: DIFFUSE LARGE B-CELL LYMPHOMA
     Dosage: 1 CYCLE
     Route: 048
     Dates: start: 20190515, end: 20190516
  22. EPOETIN [Suspect]
     Active Substance: ERYTHROPOIETIN
     Indication: ANAEMIA
     Dosage: 1 CYCLE
     Route: 058
     Dates: start: 20190523, end: 20200124
  23. LASIX [Suspect]
     Active Substance: FUROSEMIDE
     Indication: NON-HODGKIN^S LYMPHOMA
     Dosage: 1 CYCLE
     Route: 042
     Dates: start: 20200110, end: 20200113
  24. CLORFENAMINA [Suspect]
     Active Substance: CHLORPHENIRAMINE MALEATE
     Indication: NON-HODGKIN^S LYMPHOMA
     Route: 042
  25. LOSEC [Suspect]
     Active Substance: OMEPRAZOLE
     Indication: HYPERTENSION
  26. PREDNISONE. [Suspect]
     Active Substance: PREDNISONE
     Indication: ANAEMIA
  27. FILGRASTIM [Suspect]
     Active Substance: FILGRASTIM
     Indication: DIFFUSE LARGE B-CELL LYMPHOMA
  28. CANCIDAS [Suspect]
     Active Substance: CASPOFUNGIN ACETATE
     Indication: HYPERTENSION
  29. RITUXIMAB. [Suspect]
     Active Substance: RITUXIMAB
     Dosage: 2 CYCLES
     Route: 042
     Dates: start: 20191113, end: 20191223
  30. HUMAN ALBUMIN [Suspect]
     Active Substance: ALBUMIN HUMAN
     Indication: HYPERTENSION
     Route: 065
  31. VINCRISTINE SULFATE. [Suspect]
     Active Substance: VINCRISTINE SULFATE
     Indication: HYPERTENSION
     Dosage: UNKNOWN
     Route: 065
  32. VINCRISTINE SULFATE. [Suspect]
     Active Substance: VINCRISTINE SULFATE
     Indication: DIFFUSE LARGE B-CELL LYMPHOMA
  33. VEPESID [Suspect]
     Active Substance: ETOPOSIDE
     Indication: DIFFUSE LARGE B-CELL LYMPHOMA
     Route: 065
  34. VALTREX [Suspect]
     Active Substance: VALACYCLOVIR HYDROCHLORIDE
     Indication: NON-HODGKIN^S LYMPHOMA
     Route: 058
  35. VALTREX [Suspect]
     Active Substance: VALACYCLOVIR HYDROCHLORIDE
     Indication: DIFFUSE LARGE B-CELL LYMPHOMA
     Route: 042
  36. ALDACTONE [Suspect]
     Active Substance: SPIRONOLACTONE
     Indication: HYPERTENSION
     Route: 065
  37. CUBICIN [Suspect]
     Active Substance: DAPTOMYCIN
     Indication: HYPERTENSION
     Route: 065
  38. DOXORUBICIN HCL [Suspect]
     Active Substance: DOXORUBICIN HYDROCHLORIDE
     Indication: DIFFUSE LARGE B-CELL LYMPHOMA
     Dosage: UNKNOWN
     Route: 065
  39. DOXORUBICIN HCL [Suspect]
     Active Substance: DOXORUBICIN HYDROCHLORIDE
     Indication: ANAEMIA
  40. RITUXIMAB. [Suspect]
     Active Substance: RITUXIMAB
     Indication: DIFFUSE LARGE B-CELL LYMPHOMA
     Dosage: 3 CYCLES
     Route: 058
     Dates: start: 20190513, end: 20190625
  41. NORVASC [Suspect]
     Active Substance: AMLODIPINE BESYLATE
     Indication: ANAEMIA
     Route: 065
  42. CLORFENAMINA [Suspect]
     Active Substance: CHLORPHENIRAMINE MALEATE
     Indication: HYPERTENSION
  43. PREDNISONE. [Suspect]
     Active Substance: PREDNISONE
     Indication: LEUKOPENIA
     Dosage: UNK
     Route: 065
  44. CANCIDAS [Suspect]
     Active Substance: CASPOFUNGIN ACETATE
     Indication: NON-HODGKIN^S LYMPHOMA
     Route: 042
     Dates: start: 20200105, end: 20200113
  45. CANCIDAS [Suspect]
     Active Substance: CASPOFUNGIN ACETATE
     Indication: DIFFUSE LARGE B-CELL LYMPHOMA
     Route: 065
  46. HUMAN ALBUMIN [Suspect]
     Active Substance: ALBUMIN HUMAN
     Indication: NON-HODGKIN^S LYMPHOMA
     Dosage: 50 MILLIGRAM, 1 CYCLE 50 MGX2
     Route: 042
     Dates: start: 20200110, end: 20200113
  47. HUMAN ALBUMIN [Suspect]
     Active Substance: ALBUMIN HUMAN
     Indication: DIFFUSE LARGE B-CELL LYMPHOMA
  48. METHYLPREDNISOLONE. [Suspect]
     Active Substance: METHYLPREDNISOLONE
     Indication: PRODUCT USED FOR UNKNOWN INDICATION
     Dosage: UNKNOWN
     Route: 065
  49. ERYTHROPOIETIN [Suspect]
     Active Substance: ERYTHROPOIETIN
     Indication: DIFFUSE LARGE B-CELL LYMPHOMA
  50. ARACYTINE [Suspect]
     Active Substance: CYTARABINE
     Indication: NON-HODGKIN^S LYMPHOMA
     Route: 058
  51. CUBICIN [Suspect]
     Active Substance: DAPTOMYCIN
     Indication: NON-HODGKIN^S LYMPHOMA
     Dosage: 1 CYCLE
     Route: 042
     Dates: start: 20200102, end: 20200113
  52. DOXORUBICIN HCL [Suspect]
     Active Substance: DOXORUBICIN HYDROCHLORIDE
     Indication: NON-HODGKIN^S LYMPHOMA
  53. DOXORUBICIN [Suspect]
     Active Substance: DOXORUBICIN
     Indication: NON-HODGKIN^S LYMPHOMA
     Route: 058
  54. MABTHERA [Suspect]
     Active Substance: RITUXIMAB
     Dosage: 1 CYCLE
     Route: 058
     Dates: start: 20191113, end: 20191210
  55. ESHAP [Suspect]
     Active Substance: CISPLATIN\CYTARABINE\ETOPOSIDE\METHYLPREDNISOLONE (ESHAP)
     Indication: DIFFUSE LARGE B-CELL LYMPHOMA
     Dosage: 2 CYCLES
     Route: 065
     Dates: start: 20191113, end: 20191223
  56. LOSEC [Suspect]
     Active Substance: OMEPRAZOLE
     Indication: DIFFUSE LARGE B-CELL LYMPHOMA
     Route: 065
  57. LOSEC [Suspect]
     Active Substance: OMEPRAZOLE
     Indication: LEUKOPENIA
  58. MEROPENEM. [Suspect]
     Active Substance: MEROPENEM
     Route: 065
  59. CYCLOPHOSPHAMIDE. [Suspect]
     Active Substance: CYCLOPHOSPHAMIDE
     Indication: DIFFUSE LARGE B-CELL LYMPHOMA
     Dosage: UNKNOWN
     Route: 065
  60. MABTHERA [Suspect]
     Active Substance: RITUXIMAB
     Indication: LEUKOPENIA
  61. VEPESID [Suspect]
     Active Substance: ETOPOSIDE
     Indication: NON-HODGKIN^S LYMPHOMA
     Route: 058
  62. VEPESID [Suspect]
     Active Substance: ETOPOSIDE
     Indication: LEUKOPENIA
  63. VALTREX [Suspect]
     Active Substance: VALACYCLOVIR HYDROCHLORIDE
     Indication: ANAEMIA
     Route: 048
     Dates: start: 20190513, end: 20190516
  64. ARACYTINE [Suspect]
     Active Substance: CYTARABINE
     Indication: ANAEMIA
  65. CLORFENAMINA [Suspect]
     Active Substance: CHLORPHENIRAMINE MALEATE
     Indication: LEUKOPENIA
     Dosage: 1 CYCLE
     Route: 048
     Dates: start: 20200110, end: 20200112
  66. LOSEC [Suspect]
     Active Substance: OMEPRAZOLE
     Indication: NON-HODGKIN^S LYMPHOMA
     Dosage: 1 CYCLES TWICE
     Route: 042
     Dates: start: 20191223, end: 20200113
  67. FILGRASTIM [Suspect]
     Active Substance: FILGRASTIM
     Indication: LEUKOPENIA
     Route: 058
     Dates: start: 20190523, end: 20200117
  68. MABTHERA [Suspect]
     Active Substance: RITUXIMAB
     Indication: ANAEMIA
  69. HUMAN ALBUMIN [Suspect]
     Active Substance: ALBUMIN HUMAN
     Indication: ANAEMIA
  70. VEPESID [Suspect]
     Active Substance: ETOPOSIDE
     Indication: HYPERTENSION
  71. ERYTHROPOIETIN [Suspect]
     Active Substance: ERYTHROPOIETIN
     Indication: HYPERTENSION
     Dosage: UNKNOWN
     Route: 065
  72. ERYTHROPOIETIN [Suspect]
     Active Substance: ERYTHROPOIETIN
     Indication: NON-HODGKIN^S LYMPHOMA
  73. ARACYTINE [Suspect]
     Active Substance: CYTARABINE
     Indication: LEUKOPENIA
     Dosage: 3 GRAM, 2 CYCLES
     Route: 042
     Dates: start: 20191123, end: 20200113
  74. ARACYTINE [Suspect]
     Active Substance: CYTARABINE
     Indication: DIFFUSE LARGE B-CELL LYMPHOMA
  75. NORVASC [Suspect]
     Active Substance: AMLODIPINE BESYLATE
     Indication: NON-HODGKIN^S LYMPHOMA
  76. DOXORUBICIN [Suspect]
     Active Substance: DOXORUBICIN
     Dosage: 8 CYCLES
     Route: 042
     Dates: start: 20190513, end: 20191009
  77. LASIX [Suspect]
     Active Substance: FUROSEMIDE
     Indication: HYPERTENSION
  78. LASIX [Suspect]
     Active Substance: FUROSEMIDE
     Indication: DIFFUSE LARGE B-CELL LYMPHOMA
  79. MABTHERA [Suspect]
     Active Substance: RITUXIMAB
     Indication: NON-HODGKIN^S LYMPHOMA
     Dosage: 6 CYCLES
     Route: 058
     Dates: start: 20190625, end: 20191009
  80. CISPLATIN. [Suspect]
     Active Substance: CISPLATIN
     Dosage: 2 CYCLES
     Route: 042
     Dates: start: 20191119, end: 20200113
  81. CLORFENAMINA [Suspect]
     Active Substance: CHLORPHENIRAMINE MALEATE
     Indication: DIFFUSE LARGE B-CELL LYMPHOMA
  82. LOSEC [Suspect]
     Active Substance: OMEPRAZOLE
     Indication: ANAEMIA
  83. FILGRASTIM [Suspect]
     Active Substance: FILGRASTIM
     Indication: HYPERTENSION
  84. MEROPENEM. [Suspect]
     Active Substance: MEROPENEM
     Indication: NON-HODGKIN^S LYMPHOMA
     Dosage: 1 CYCLE 2GX3
     Route: 042
     Dates: start: 20200103, end: 20200113
  85. RITUXIMAB. [Suspect]
     Active Substance: RITUXIMAB
     Indication: DIFFUSE LARGE B-CELL LYMPHOMA
     Dosage: 8 CYCLES
     Route: 042
     Dates: start: 20190513, end: 20191013
  86. VINCRISTINE SULFATE. [Suspect]
     Active Substance: VINCRISTINE SULFATE
     Indication: ANAEMIA
  87. VINCRISTINE SULFATE. [Suspect]
     Active Substance: VINCRISTINE SULFATE
     Indication: NON-HODGKIN^S LYMPHOMA
  88. RITUXIMAB. [Suspect]
     Active Substance: RITUXIMAB
     Indication: PRODUCT USED FOR UNKNOWN INDICATION
     Dosage: UNKNOWN
     Route: 065
  89. VEPESID [Suspect]
     Active Substance: ETOPOSIDE
     Indication: ANAEMIA
     Dosage: 90 MILLIGRAM, 2 CYCLE
     Route: 042
     Dates: start: 20191119, end: 20200113
  90. ALDACTONE [Suspect]
     Active Substance: SPIRONOLACTONE
     Indication: NON-HODGKIN^S LYMPHOMA
     Route: 042
  91. ALDACTONE [Suspect]
     Active Substance: SPIRONOLACTONE
     Indication: LEUKOPENIA
  92. CUBICIN [Suspect]
     Active Substance: DAPTOMYCIN
     Indication: DIFFUSE LARGE B-CELL LYMPHOMA
  93. CYCLOPHOSPHAMIDE. [Suspect]
     Active Substance: CYCLOPHOSPHAMIDE
     Indication: NON-HODGKIN^S LYMPHOMA
  94. CYCLOPHOSPHAMIDE. [Suspect]
     Active Substance: CYCLOPHOSPHAMIDE
     Indication: LEUKOPENIA
  95. MABTHERA [Suspect]
     Active Substance: RITUXIMAB
     Indication: NON-HODGKIN^S LYMPHOMA
     Dosage: 1 CYCLE
     Route: 042
     Dates: start: 20191222, end: 20200113
  96. MABTHERA [Suspect]
     Active Substance: RITUXIMAB
     Indication: HYPERTENSION
  97. ERYTHROPOIETIN [Suspect]
     Active Substance: ERYTHROPOIETIN
     Indication: LEUKOPENIA
  98. ARACYTINE [Suspect]
     Active Substance: CYTARABINE
     Indication: HYPERTENSION
     Route: 065
  99. ALDACTONE [Suspect]
     Active Substance: SPIRONOLACTONE
     Indication: ANAEMIA
     Dosage: 1 CYCLE
     Route: 048
     Dates: start: 20200105, end: 20200112
  100. NORVASC [Suspect]
     Active Substance: AMLODIPINE BESYLATE
     Indication: HYPERTENSION
     Route: 058
  101. NORVASC [Suspect]
     Active Substance: AMLODIPINE BESYLATE
     Indication: LEUKOPENIA
  102. LASIX [Suspect]
     Active Substance: FUROSEMIDE
     Indication: ANAEMIA
     Route: 065
  103. PREDNISONE. [Suspect]
     Active Substance: PREDNISONE
     Indication: DIFFUSE LARGE B-CELL LYMPHOMA
  104. PREDNISONE. [Suspect]
     Active Substance: PREDNISONE
     Indication: NON-HODGKIN^S LYMPHOMA
  105. FILGRASTIM [Suspect]
     Active Substance: FILGRASTIM
     Indication: NON-HODGKIN^S LYMPHOMA
     Route: 065
  106. FILGRASTIM [Suspect]
     Active Substance: FILGRASTIM
     Indication: ANAEMIA
  107. CYCLOPHOSPHAMIDE. [Suspect]
     Active Substance: CYCLOPHOSPHAMIDE
     Indication: ANAEMIA

REACTIONS (1)
  - Diffuse large B-cell lymphoma refractory [Unknown]
